FAERS Safety Report 9392166 (Version 1)
Quarter: 2013Q3

REPORT INFORMATION
  Report Type: Spontaneous
  Country: US (occurrence: US)
  Receive Date: 20130710
  Receipt Date: 20130710
  Transmission Date: 20140515
  Serious: No
  Sender: FDA-Public Use
  Company Number: US-009507513-1306USA010868

PATIENT
  Sex: Female

DRUGS (1)
  1. JUVISYNC [Suspect]
     Indication: BLOOD CHOLESTEROL INCREASED
     Dosage: 100/40 MG ONCE DAILY
     Route: 048
     Dates: start: 201206, end: 201306

REACTIONS (2)
  - Rhinorrhoea [Recovering/Resolving]
  - Rash [Recovering/Resolving]
